FAERS Safety Report 4293359-X (Version None)
Quarter: 2004Q1

REPORT INFORMATION
  Report Type: 
  Country: None (occurrence: None)
  Receive Date: 20040210
  Receipt Date: 20040127
  Transmission Date: 20041129
  Serious: Yes (Hospitalization)
  Sender: FDA-Public Use
  Company Number: 01P-163-0180049-00

PATIENT
  Age: 57 Year
  Sex: Male
  Weight: 90 kg

DRUGS (8)
  1. HUMIRA [Suspect]
     Indication: RHEUMATOID ARTHRITIS
     Dosage: 1 IN 2 WK, SUBCUTANEOUS
     Route: 058
     Dates: start: 20010822, end: 20010905
  2. METHOTREXATE (BLINDED) (METHOTREXATE) (METHOTREXATE) [Concomitant]
  3. FOLIC ACID [Concomitant]
  4. CELEBREX [Concomitant]
  5. VITAMIN E [Concomitant]
  6. VITAMIN B12 [Concomitant]
  7. ASPIRIN [Concomitant]
  8. PRENDISONE (PREDNISONE) [Concomitant]

REACTIONS (5)
  - ABDOMINAL PAIN [None]
  - NEUROPATHY PERIPHERAL [None]
  - PYREXIA [None]
  - RHEUMATOID VASCULITIS [None]
  - WHITE BLOOD CELL COUNT INCREASED [None]
